FAERS Safety Report 8383387-7 (Version None)
Quarter: 2012Q2

REPORT INFORMATION
  Report Type: 
  Country: None (occurrence: None)
  Receive Date: 20120524
  Receipt Date: 20120514
  Transmission Date: 20120825
  Serious: Yes (Hospitalization, Other)
  Sender: FDA-Public Use
  Company Number: US-SANOFI-AVENTIS-2012SA034388

PATIENT
  Sex: Female

DRUGS (4)
  1. ASPIRIN [Suspect]
  2. ANTITHROMBOTIC AGENTS [Suspect]
  3. LOVENOX [Suspect]
  4. LOVENOX [Suspect]

REACTIONS (4)
  - HAEMORRHAGE [None]
  - THROMBOSIS [None]
  - HAEMATOMA [None]
  - CEREBROVASCULAR ACCIDENT [None]
